FAERS Safety Report 8914187 (Version 2)
Quarter: 2012Q4

REPORT INFORMATION
  Report Type: 
  Country: JP (occurrence: JP)
  Receive Date: 20121119
  Receipt Date: 20121210
  Transmission Date: 20130627
  Serious: No
  Sender: FDA-Public Use
  Company Number: JP-JNJFOC-20121016405

PATIENT
  Age: 47 Year
  Sex: Female

DRUGS (7)
  1. TRAMCET [Suspect]
     Indication: PAIN
     Dosage: 4 tablets, per day, 4 times daily
     Route: 048
     Dates: end: 20121011
  2. TRAMCET [Suspect]
     Indication: PAIN
     Dosage: twice daily
     Route: 048
     Dates: start: 20121012
  3. ACTOS [Suspect]
     Indication: TYPE 2 DIABETES MELLITUS
     Route: 048
     Dates: end: 20121109
  4. CRESTOR [Suspect]
     Indication: HYPERCHOLESTEROLAEMIA
     Route: 048
     Dates: end: 20121109
  5. GLACTIV [Concomitant]
     Indication: TYPE 2 DIABETES MELLITUS
     Route: 048
  6. BLOPRESS [Concomitant]
     Indication: HYPERTENSION
     Route: 048
  7. BOFUTSUSHOSAN [Concomitant]
     Indication: PRODUCT USED FOR UNKNOWN INDICATION
     Route: 048

REACTIONS (4)
  - Arthralgia [Recovering/Resolving]
  - Oedema peripheral [Recovering/Resolving]
  - Pain [Recovering/Resolving]
  - Malaise [Unknown]
